FAERS Safety Report 7185530-4 (Version None)
Quarter: 2010Q4

REPORT INFORMATION
  Report Type: 
  Country: None (occurrence: None)
  Receive Date: 20101222
  Receipt Date: 20101206
  Transmission Date: 20110411
  Serious: Yes (Other)
  Sender: FDA-Public Use
  Company Number: US-SANOFI-AVENTIS-2010SA074950

PATIENT
  Age: 91 Year
  Sex: Male

DRUGS (2)
  1. SOLOSTAR [Suspect]
     Dosage: PRODUCT START DATE MENTIONED AS 6 MONTHS AGO
     Dates: start: 20100601
  2. LANTUS [Suspect]
     Dosage: PRODUCT START DATE MENTIONED AS 6 MONTHS AGO DOSE:24 UNIT(S)
     Route: 058
     Dates: start: 20100601

REACTIONS (2)
  - BLOOD GLUCOSE INCREASED [None]
  - DEVICE MALFUNCTION [None]
